FAERS Safety Report 8345470 (Version 2)
Quarter: 2012Q4

REPORT INFORMATION
  Report Type: 
  Country: US (occurrence: US)
  Receive Date: 20120120
  Receipt Date: 20121019
  Transmission Date: 20130627
  Serious: Yes (Death)
  Sender: FDA-Public Use
  Company Number: US-BRISTOL-MYERS SQUIBB COMPANY-16156341

PATIENT
  Age: 41 Year
  Sex: Male

DRUGS (1)
  1. YERVOY [Suspect]
     Dosage: 2 doses
     Route: 042
     Dates: start: 20110816, end: 20110907

REACTIONS (1)
  - Hepatic failure [Fatal]
